FAERS Safety Report 6791187-4 (Version None)
Quarter: 2010Q2

REPORT INFORMATION
  Report Type: 
  Country: None (occurrence: None)
  Receive Date: 20100623
  Receipt Date: 20100623
  Transmission Date: 20101027
  Serious: Yes (Hospitalization)
  Sender: FDA-Public Use
  Company Number: None

PATIENT
  Age: 36 Year
  Sex: Female
  Weight: 108.8633 kg

DRUGS (3)
  1. TRAMADOL HCL [Suspect]
     Indication: INFECTION
     Dosage: 1 OR 2 TABLETS EVERY 6 HRS PO
     Route: 048
     Dates: start: 20100621, end: 20100621
  2. TRAMADOL HCL [Suspect]
     Indication: NEPHROLITHIASIS
     Dosage: 1 OR 2 TABLETS EVERY 6 HRS PO
     Route: 048
     Dates: start: 20100621, end: 20100621
  3. TRAMADOL HCL [Suspect]
     Indication: PAIN
     Dosage: 1 OR 2 TABLETS EVERY 6 HRS PO
     Route: 048
     Dates: start: 20100621, end: 20100621

REACTIONS (16)
  - BLOOD GLUCOSE DECREASED [None]
  - CHILLS [None]
  - DIZZINESS [None]
  - DRUG EFFECT DECREASED [None]
  - DRUG HYPERSENSITIVITY [None]
  - EUPHORIC MOOD [None]
  - HEART RATE INCREASED [None]
  - HYPERHIDROSIS [None]
  - HYPERTENSION [None]
  - HYPOAESTHESIA [None]
  - HYPOAESTHESIA ORAL [None]
  - OVERDOSE [None]
  - PAIN [None]
  - PALLOR [None]
  - TREMOR [None]
  - VOMITING [None]
